FAERS Safety Report 5798575-3 (Version None)
Quarter: 2008Q3

REPORT INFORMATION
  Report Type: 
  Country: None (occurrence: None)
  Receive Date: 20080701
  Receipt Date: 20080701
  Transmission Date: 20090109
  Serious: No
  Sender: FDA-Public Use
  Company Number: None

PATIENT
  Age: 39 Year
  Sex: Male

DRUGS (1)
  1. GLATIRAMER [Suspect]
     Indication: MULTIPLE SCLEROSIS
     Dosage: 20 MG EVERY DAY SQ
     Route: 058
     Dates: end: 20080530

REACTIONS (4)
  - INJECTION SITE ERYTHEMA [None]
  - INJECTION SITE RASH [None]
  - RASH PRURITIC [None]
  - SWELLING [None]
